FAERS Safety Report 25319224 (Version 2)
Quarter: 2025Q3

REPORT INFORMATION
  Report Type: Report from Study
  Country: US (occurrence: US)
  Receive Date: 20250515
  Receipt Date: 20250722
  Transmission Date: 20251020
  Serious: Yes (Other)
  Sender: NOVARTIS
  Company Number: US-002147023-NVSC2025US077139

PATIENT
  Age: 40 Year
  Sex: Female

DRUGS (1)
  1. KESIMPTA [Suspect]
     Active Substance: OFATUMUMAB
     Indication: Relapsing multiple sclerosis
     Dosage: 20 MG, QMO
     Route: 058
     Dates: start: 20250503

REACTIONS (20)
  - Loss of consciousness [Unknown]
  - Hallucination, auditory [Unknown]
  - Multiple sclerosis relapse [Unknown]
  - Flushing [Unknown]
  - Chills [Recovered/Resolved]
  - Tremor [Unknown]
  - Fatigue [Unknown]
  - Asthenia [Not Recovered/Not Resolved]
  - Dyspnoea [Unknown]
  - Balance disorder [Not Recovered/Not Resolved]
  - Gait disturbance [Not Recovered/Not Resolved]
  - Dizziness [Unknown]
  - Pain [Unknown]
  - Mobility decreased [Unknown]
  - Confusional state [Unknown]
  - Headache [Unknown]
  - Dysstasia [Unknown]
  - Muscular weakness [Unknown]
  - Feeling cold [Unknown]
  - Cognitive disorder [Unknown]

NARRATIVE: CASE EVENT DATE: 20250503
